FAERS Safety Report 14009555 (Version 1)
Quarter: 2017Q3

REPORT INFORMATION
  Report Type: Spontaneous
  Country: US (occurrence: US)
  Receive Date: 20170925
  Receipt Date: 20170925
  Transmission Date: 20171128
  Serious: No
  Sender: FDA-Public Use
  Company Number: US-G+W LABS-GW2017US000031

PATIENT

DRUGS (1)
  1. CLOBETASOL PROPIONATE. [Suspect]
     Active Substance: CLOBETASOL PROPIONATE
     Indication: PSORIASIS
     Dosage: 0.05 %, BID (ONCE IN THE MORNING AND ONCE IN THE EVENING)
     Route: 061
     Dates: start: 201612, end: 20170111

REACTIONS (6)
  - Off label use [Recovered/Resolved]
  - Pruritus [Recovering/Resolving]
  - Drug hypersensitivity [Recovering/Resolving]
  - Skin burning sensation [Recovering/Resolving]
  - Biopsy [Recovered/Resolved]
  - Erythema [Recovering/Resolving]
